FAERS Safety Report 7608398-8 (Version None)
Quarter: 2011Q3

REPORT INFORMATION
  Report Type: 
  Country: None (occurrence: None)
  Receive Date: 20110713
  Receipt Date: 20110713
  Transmission Date: 20111222
  Serious: No
  Sender: FDA-Public Use
  Company Number: None

PATIENT
  Sex: Male
  Weight: 90.7194 kg

DRUGS (1)
  1. AMBIEN CR [Suspect]
     Indication: INSOMNIA
     Dosage: AMBIEN CR (GENERIC) 12.5 MG ORAL (DATES OF USE: WHEN GENERIC BECAME AVAILABLE)
     Route: 048

REACTIONS (1)
  - HYPOAESTHESIA ORAL [None]
